FAERS Safety Report 20823015 (Version 1)
Quarter: 2022Q2

REPORT INFORMATION
  Report Type: Spontaneous
  Country: IR (occurrence: IR)
  Receive Date: 20220512
  Receipt Date: 20220512
  Transmission Date: 20220720
  Serious: Yes (Death, Life-Threatening, Hospitalization, Other)
  Sender: FDA-Public Use
  Company Number: IR-PRINSTON PHARMACEUTICAL INC.-2022PRN00164

PATIENT
  Age: 60 Year
  Sex: Female

DRUGS (2)
  1. AMPHETAMINE [Suspect]
     Active Substance: AMPHETAMINE
     Route: 065
  2. ALPRAZOLAM [Suspect]
     Active Substance: ALPRAZOLAM
     Route: 065

REACTIONS (13)
  - Gastric perforation [Fatal]
  - Suicide attempt [Recovered/Resolved]
  - Overdose [Unknown]
  - Toxicity to various agents [Fatal]
  - Renal failure [Unknown]
  - Metabolic encephalopathy [Fatal]
  - Peptic ulcer perforation [Fatal]
  - Sepsis [Fatal]
  - Bundle branch block [Unknown]
  - Peritonitis [Unknown]
  - Cholecystitis [Unknown]
  - Cardio-respiratory arrest [Fatal]
  - Cytomegalovirus infection [Fatal]
